FAERS Safety Report 7955281-4 (Version None)
Quarter: 2011Q4

REPORT INFORMATION
  Report Type: 
  Country: None (occurrence: None)
  Receive Date: 20111202
  Receipt Date: 20111128
  Transmission Date: 20120403
  Serious: Yes (Hospitalization)
  Sender: FDA-Public Use
  Company Number: FR-BAYER-2011-114999

PATIENT
  Age: 65 Year
  Sex: Male

DRUGS (4)
  1. CIPROFLOXACIN [Suspect]
     Dosage: UNK
     Route: 048
     Dates: start: 20111001, end: 20111001
  2. OFLOXACIN [Suspect]
     Dosage: UNK
     Route: 048
     Dates: start: 20111010, end: 20111025
  3. GLIMEPIRIDE [Concomitant]
     Indication: TYPE 2 DIABETES MELLITUS
  4. METFORMIN HCL [Concomitant]
     Indication: TYPE 2 DIABETES MELLITUS

REACTIONS (4)
  - MYALGIA [None]
  - WEIGHT DECREASED [None]
  - PYREXIA [None]
  - CHILLS [None]
